FAERS Safety Report 10223398 (Version 2)
Quarter: 2014Q4

REPORT INFORMATION
  Report Type: Report from Study
  Country: HU (occurrence: HU)
  Receive Date: 20140609
  Receipt Date: 20141102
  Transmission Date: 20150528
  Serious: Yes (Hospitalization)
  Sender: FDA-Public Use
  Company Number: HU-ROCHE-1413364

PATIENT
  Age: 60 Year
  Sex: Male
  Weight: 80 kg

DRUGS (10)
  1. AVELOX [Concomitant]
     Active Substance: MOXIFLOXACIN HYDROCHLORIDE
     Indication: LUNG INFECTION
     Route: 065
     Dates: start: 20140506, end: 20140511
  2. ACICLOVIR [Concomitant]
     Active Substance: ACYCLOVIR
     Indication: INFECTION
     Route: 065
     Dates: start: 20120411
  3. BISOPROLOL [Concomitant]
     Active Substance: BISOPROLOL
     Indication: CARDIAC FAILURE
     Route: 065
     Dates: start: 20121025
  4. MARFARIN [Concomitant]
     Active Substance: WARFARIN
     Indication: CARDIAC FAILURE
     Route: 065
     Dates: start: 20130115
  5. DOXORUBICIN [Suspect]
     Active Substance: DOXORUBICIN
     Indication: DIFFUSE LARGE B-CELL LYMPHOMA
     Dosage: LAST DOSE TAKEN PRIOR TO SAE WAS 91 MG ON 22/AUG/2012.
     Route: 042
     Dates: start: 20120330, end: 20120822
  6. VINCRISTINE [Suspect]
     Active Substance: VINCRISTINE
     Indication: DIFFUSE LARGE B-CELL LYMPHOMA
     Dosage: DOSE OF LAST TAKEN PRIOR TO SAE WAS 2 MG (IV PUSH) ON 22/AUG/2012.
     Route: 042
     Dates: start: 20120330, end: 20120822
  7. PREDNISONE. [Suspect]
     Active Substance: PREDNISONE
     Indication: DIFFUSE LARGE B-CELL LYMPHOMA
     Dosage: DOSE TAKEN OF MOST RECENT DOSE PRIOR TO SAE WAS 100 MG ON 26/AUG/2012.
     Route: 065
     Dates: start: 20120330, end: 20120826
  8. ASA [Concomitant]
     Active Substance: ASPIRIN
  9. OBINUTUZUMAB [Suspect]
     Active Substance: OBINUTUZUMAB
     Indication: DIFFUSE LARGE B-CELL LYMPHOMA
     Dosage: LAST DOSE PRIOR TO SAE ON 22/AUG/2012 (VOLUME 250 ML WITH DOSE CONCENTRATION OF 4 MG/ML)
     Route: 042
     Dates: start: 20120330, end: 20120822
  10. CYCLOPHOSPHAMIDE. [Suspect]
     Active Substance: CYCLOPHOSPHAMIDE
     Indication: DIFFUSE LARGE B-CELL LYMPHOMA
     Dosage: DATE OF MOST RECENT DOSE PRIOR TO SAE WAS ON 22/AUG/2012 (1370 MG)
     Route: 042
     Dates: start: 20120330, end: 20120822

REACTIONS (1)
  - Lung infiltration [Not Recovered/Not Resolved]

NARRATIVE: CASE EVENT DATE: 20140602
